FAERS Safety Report 19133165 (Version 2)
Quarter: 2021Q2

REPORT INFORMATION
  Report Type: Spontaneous
  Country: IE (occurrence: IE)
  Receive Date: 20210414
  Receipt Date: 20210423
  Transmission Date: 20210717
  Serious: Yes (Life-Threatening, Hospitalization)
  Sender: FDA-Public Use
  Company Number: IE-MYLANLABS-2021M1021668

PATIENT
  Age: 46 Year
  Sex: Female

DRUGS (1)
  1. BACLOFEN. [Suspect]
     Active Substance: BACLOFEN
     Indication: ALCOHOL WITHDRAWAL SYNDROME
     Dosage: UNK
     Route: 065

REACTIONS (8)
  - Overdose [Recovered/Resolved]
  - Hypertension [Recovered/Resolved]
  - Respiratory depression [Recovered/Resolved]
  - Pupillary reflex impaired [Recovered/Resolved]
  - Toxicity to various agents [Recovered/Resolved]
  - Coma scale abnormal [Recovered/Resolved]
  - Seizure [Recovered/Resolved]
  - Off label use [Recovered/Resolved]
